FAERS Safety Report 9217874 (Version 3)
Quarter: 2013Q3

REPORT INFORMATION
  Report Type: Report from Study
  Country: JP (occurrence: JP)
  Receive Date: 20130408
  Receipt Date: 20130729
  Transmission Date: 20140515
  Serious: Yes (Hospitalization, Other)
  Sender: FDA-Public Use
  Company Number: JP-PFIZER INC-2013104526

PATIENT
  Sex: Female
  Weight: 4.5 kg

DRUGS (7)
  1. SILDENAFIL CITRATE [Suspect]
     Indication: PULMONARY ARTERIAL HYPERTENSION
     Dosage: 5MG/DAY, 3X/DAY
     Route: 048
     Dates: start: 20100525, end: 20100606
  2. SILDENAFIL CITRATE [Suspect]
     Dosage: 10MG/DAY, 3X/DAY
     Route: 048
     Dates: start: 20100607, end: 20101024
  3. SILDENAFIL CITRATE [Suspect]
     Dosage: 5 MG, 3X/DAY
     Route: 048
     Dates: start: 20101025, end: 20101121
  4. SILDENAFIL CITRATE [Suspect]
     Dosage: 20MG/DAY, 3X/DAY
     Route: 048
     Dates: start: 20101122, end: 20130521
  5. TRACLEER [Concomitant]
     Indication: PULMONARY HYPERTENSION
     Dosage: UNK
     Route: 048
     Dates: start: 20100525, end: 20120320
  6. LUPRAC [Concomitant]
     Indication: CARDIAC FAILURE
     Dosage: UNK
     Route: 048
     Dates: end: 20110307
  7. ALDACTONE-A [Concomitant]
     Indication: CARDIAC FAILURE
     Dosage: UNK
     Route: 048
     Dates: end: 20110307

REACTIONS (1)
  - Pulmonary arteriovenous fistula [Recovered/Resolved]
